FAERS Safety Report 25361706 (Version 1)
Quarter: 2025Q2

REPORT INFORMATION
  Report Type: Spontaneous
  Country: HR (occurrence: HR)
  Receive Date: 20250527
  Receipt Date: 20250527
  Transmission Date: 20250717
  Serious: Yes (Other)
  Sender: NOVARTIS
  Company Number: HR-002147023-NVSC2025HR081392

PATIENT
  Sex: Female

DRUGS (5)
  1. TASIGNA [Suspect]
     Active Substance: NILOTINIB
     Indication: Chronic myeloid leukaemia
     Route: 065
     Dates: start: 20180620
  2. ASCIMINIB [Suspect]
     Active Substance: ASCIMINIB
     Indication: Chronic myeloid leukaemia
     Route: 065
     Dates: start: 202312, end: 202403
  3. ASCIMINIB [Suspect]
     Active Substance: ASCIMINIB
     Route: 065
  4. GLICLAZIDE [Concomitant]
     Active Substance: GLICLAZIDE
     Indication: Hyperglycaemia
     Route: 065
     Dates: start: 201804
  5. IMATINIB [Concomitant]
     Active Substance: IMATINIB
     Indication: Product used for unknown indication
     Dosage: 400 MG, QD
     Route: 065
     Dates: start: 20161219

REACTIONS (14)
  - Diabetes mellitus inadequate control [Unknown]
  - Duodenal ulcer [Unknown]
  - Vascular graft occlusion [Unknown]
  - Nausea [Unknown]
  - Back pain [Unknown]
  - Osteoporosis [Unknown]
  - Transaminases increased [Unknown]
  - Drug ineffective [Unknown]
  - Peripheral arterial occlusive disease [Unknown]
  - Pain in extremity [Unknown]
  - Arthralgia [Unknown]
  - Vomiting [Unknown]
  - Vertigo [Unknown]
  - Pruritus [Unknown]

NARRATIVE: CASE EVENT DATE: 20230601
